FAERS Safety Report 5158030-0 (Version None)
Quarter: 2006Q4

REPORT INFORMATION
  Report Type: 
  Country: None (occurrence: None)
  Receive Date: 20061116
  Receipt Date: 20061106
  Transmission Date: 20070319
  Serious: Yes (Other)
  Sender: FDA-Public Use
  Company Number: 2006135850

PATIENT
  Age: 16 Year
  Sex: Male

DRUGS (2)
  1. VFEND [Suspect]
  2. CANCIDAS [Suspect]

REACTIONS (1)
  - MYOSITIS OSSIFICANS [None]
